FAERS Safety Report 20758523 (Version 2)
Quarter: 2022Q2

REPORT INFORMATION
  Report Type: Spontaneous
  Country: JP (occurrence: None)
  Receive Date: 20220427
  Receipt Date: 20220503
  Transmission Date: 20220721
  Serious: Yes (Other)
  Sender: FDA-Public Use
  Company Number: 2022A062322

PATIENT
  Age: 83 Year
  Sex: Male
  Weight: 55 kg

DRUGS (34)
  1. DAPAGLIFLOZIN [Suspect]
     Active Substance: DAPAGLIFLOZIN
     Indication: Cardiac failure chronic
     Dosage: AFTER BREAKFAST
     Route: 048
     Dates: start: 20220118, end: 20220124
  2. VASOLAN [Concomitant]
     Dosage: AFTER EACH MEAL
     Route: 048
  3. MOSAPRIDE CITRATE [Concomitant]
     Active Substance: MOSAPRIDE CITRATE
     Dosage: AFTER EACH MEAL
     Route: 048
  4. CARBOCYSTEINE [Concomitant]
     Active Substance: CARBOCYSTEINE
     Dosage: AFTER EACH MEAL
     Route: 048
  5. URSO [Concomitant]
     Active Substance: URSODIOL
     Dosage: AFTER EACH MEAL
     Route: 048
  6. URAPIDIL [Concomitant]
     Active Substance: URAPIDIL
     Dosage: AFTER BREAKFAST AND DINNER
     Route: 048
  7. AMBROXOL HYDROCHLORIDE [Concomitant]
     Active Substance: AMBROXOL HYDROCHLORIDE
     Dosage: AFTER BREAKFAST
     Route: 048
  8. ADALAT CC [Concomitant]
     Active Substance: NIFEDIPINE
     Dosage: AFTER BREAKFAST
     Route: 048
  9. VONOPRAZAN FUMARATE [Concomitant]
     Active Substance: VONOPRAZAN FUMARATE
     Dosage: AFTER BREAKFAST
     Route: 048
  10. CARVEDILOL [Concomitant]
     Active Substance: CARVEDILOL
     Indication: Cardiac failure chronic
     Dosage: AFTER BREAKFAST
     Route: 048
  11. BETAHISTINE MESILATE [Concomitant]
     Active Substance: BETAHISTINE MESILATE
     Dosage: AFTER EACH MEAL
     Route: 048
  12. ALLEGRA [Concomitant]
     Active Substance: FEXOFENADINE HYDROCHLORIDE
     Dosage: AFTER BREAKFAST AND BEFORE BEDTIME
     Route: 048
  13. LASIX [Concomitant]
     Active Substance: FUROSEMIDE
     Indication: Cardiac failure chronic
     Dosage: AFTER BREAKFAST
     Route: 048
  14. SPIRONOLACTONE [Concomitant]
     Active Substance: SPIRONOLACTONE
     Indication: Cardiac failure chronic
     Dosage: AFTER BREAKFAST
     Route: 048
  15. XARELTO OD [Concomitant]
     Dosage: AFTER BREAKFAST
     Route: 048
  16. TROCHES(COMP.) [Concomitant]
     Dosage: IN THE MOUTH WITHOUT CHEWING
     Route: 048
  17. ENTRESTO [Concomitant]
     Active Substance: SACUBITRIL\VALSARTAN
     Indication: Cardiac failure chronic
     Dosage: AFTER BREAKFAST AND DINNER
     Route: 048
  18. ENSURE [Concomitant]
     Active Substance: AMINO ACIDS\DEXTROSE\ELECTROLYTES NOS\SOYBEAN OIL\VITAMINS
     Route: 048
  19. CYMBALTA [Concomitant]
     Active Substance: DULOXETINE HYDROCHLORIDE
     Dosage: AFTER BREAKFAST
     Route: 048
  20. LOXOPROFEN SODIUM [Concomitant]
     Active Substance: LOXOPROFEN SODIUM
     Dosage: AFTER EACH MEAL
     Route: 048
  21. BLINDED MUCOSTA [Concomitant]
     Dosage: AFTER EACH MEAL
     Route: 048
  22. DICLOFENAC [Concomitant]
     Active Substance: DICLOFENAC
     Indication: Arthralgia
     Dosage: APPLIED TO THE AFFECTED SITE
     Route: 062
  23. MIANSERIN [Concomitant]
     Active Substance: MIANSERIN
     Dosage: BEFORE BEDTIME
     Route: 048
     Dates: start: 20220106
  24. MIANSERIN [Concomitant]
     Active Substance: MIANSERIN
     Dosage: BEFORE BEDTIME
     Route: 048
     Dates: start: 20220106
  25. BROTIZOLAM [Concomitant]
     Active Substance: BROTIZOLAM
     Dosage: BEFORE BEDTIME
     Route: 048
     Dates: start: 20220106
  26. ROZEREM [Concomitant]
     Active Substance: RAMELTEON
     Dosage: AFTER DINNER
     Route: 048
     Dates: start: 20220106
  27. BLINDED LYRICA OD [Concomitant]
     Dosage: AFTER DINNER AND BEFORE BEDTIME
     Route: 048
     Dates: start: 20220106
  28. CERCINE [Concomitant]
     Active Substance: DIAZEPAM
     Dosage: AFTER BREAKFAST AND DINNER
     Route: 048
  29. HERBALS [Concomitant]
     Active Substance: HERBALS
     Dosage: BEFORE LUNCH AND BEDTIME
     Route: 048
  30. TALION [Concomitant]
     Dosage: AFTER BREAKFAST AND DINNER
     Route: 048
  31. DIPHENHYDRAMINE [Concomitant]
     Active Substance: DIPHENHYDRAMINE
     Dosage: APPLIEDD TO THE AFFECTED SITE, SCROTUM (WHEN IT WAS ITCHY)
     Route: 062
  32. PREDNISOLONE VALERATE ACETATE [Concomitant]
     Active Substance: PREDNISOLONE VALERATE ACETATE
     Dosage: DOSE UNKNOWN, ONCE OR TWICE DAILY, APPLIED TO THE AFFECTED SITE, FACE
     Route: 062
  33. ANALGESICS, ANTI-ITCHINGS, ASTRIGENTS AND ANTI-INFLAMMATORY AGENTS [Concomitant]
     Dosage: DOSE UNKNOWN, SEVERAL TIMES DAILY, APPLIED TO THE AFFECTED SITE, WHERE IT WAS ITCHY
     Route: 062
  34. UREA [Concomitant]
     Active Substance: UREA
     Indication: Ingrowing nail
     Dosage: DOSE UNKNOWN, APPLIED TO THE AFFECTED SITE, FINGERNAILS
     Route: 062

REACTIONS (2)
  - Hypoglycaemia [Recovered/Resolved]
  - Altered state of consciousness [Recovered/Resolved]

NARRATIVE: CASE EVENT DATE: 20220124
